FAERS Safety Report 5193550-4 (Version None)
Quarter: 2006Q4

REPORT INFORMATION
  Report Type: 
  Country: None (occurrence: None)
  Receive Date: 20061228
  Receipt Date: 20060710
  Transmission Date: 20070319
  Serious: No
  Sender: FDA-Public Use
  Company Number: PAR-4223-AE

PATIENT
  Age: 51 Year
  Sex: Male
  Weight: 72.7 kg

DRUGS (3)
  1. FLUTICASONE PROPIONATE [Suspect]
     Indication: SEASONAL ALLERGY
     Dosage: 2SPR TWICE PER DAY
     Route: 045
     Dates: start: 20060517, end: 20060601
  2. FLONASE [Concomitant]
     Indication: SEASONAL ALLERGY
     Dosage: 2SPR TWICE PER DAY
     Route: 045
     Dates: end: 20060601
  3. ALEVE [Concomitant]

REACTIONS (6)
  - COUGH [None]
  - DRUG INEFFECTIVE [None]
  - EYE IRRITATION [None]
  - NASAL DISCOMFORT [None]
  - PHARMACEUTICAL PRODUCT COMPLAINT [None]
  - PHARYNGOLARYNGEAL PAIN [None]
